FAERS Safety Report 25786001 (Version 1)
Quarter: 2025Q3

REPORT INFORMATION
  Report Type: Spontaneous
  Country: US (occurrence: US)
  Receive Date: 20250910
  Receipt Date: 20250910
  Transmission Date: 20251021
  Serious: Yes (Other)
  Sender: MALLINCKRODT
  Company Number: US-MALLINCKRODT-MNK202505531

PATIENT
  Age: 26 Year
  Sex: Male

DRUGS (11)
  1. NITRIC OXIDE [Suspect]
     Active Substance: NITRIC OXIDE
     Indication: Product used for unknown indication
     Route: 055
  2. DOBUTAMINE [Concomitant]
     Active Substance: DOBUTAMINE HYDROCHLORIDE
  3. DOBUTAMINE [Concomitant]
     Active Substance: DOBUTAMINE HYDROCHLORIDE
  4. EPINEPHRINE [Concomitant]
     Active Substance: EPINEPHRINE
  5. EPINEPHRINE [Concomitant]
     Active Substance: EPINEPHRINE
  6. NOREPINEPHRINE [Concomitant]
     Active Substance: NOREPINEPHRINE
  7. VASOPRESSIN [Concomitant]
     Active Substance: VASOPRESSIN
  8. VASOPRESSIN [Concomitant]
     Active Substance: VASOPRESSIN
  9. VASOPRESSIN [Concomitant]
     Active Substance: VASOPRESSIN
  10. MILRINONE [Concomitant]
     Active Substance: MILRINONE
  11. EPOPROSTENOL [Concomitant]
     Active Substance: EPOPROSTENOL
     Route: 055

REACTIONS (6)
  - Right ventricular failure [Unknown]
  - Acute respiratory failure [Unknown]
  - Congestive hepatopathy [Unknown]
  - Pneumonia [Unknown]
  - Acute hepatic failure [Unknown]
  - Product use issue [Unknown]
